FAERS Safety Report 10146757 (Version 1)
Quarter: 2014Q2

REPORT INFORMATION
  Report Type: Spontaneous
  Country: US (occurrence: US)
  Receive Date: 20140501
  Receipt Date: 20140501
  Transmission Date: 20141212
  Serious: No
  Sender: FDA-Public Use
  Company Number: US-BAUSCH-BL-2013-003828

PATIENT
  Sex: Female

DRUGS (3)
  1. LOTEMAX (LOTEPREDNOL ETABONATE OPHTHALMIC SUSPENSION 0.5%) [Suspect]
     Indication: DRY EYE
     Dosage: 1 DROP IN EACH EYE; ONCE DAILY; OPHTHALMIC
     Route: 047
     Dates: start: 2010
  2. TOPROL [Concomitant]
     Indication: HEART RATE IRREGULAR
  3. BABY ASPIRIN [Concomitant]

REACTIONS (3)
  - Off label use [Unknown]
  - Headache [Not Recovered/Not Resolved]
  - Dizziness [Not Recovered/Not Resolved]
